FAERS Safety Report 8890556 (Version 1)
Quarter: 2012Q4

REPORT INFORMATION
  Report Type: Report from Study
  Country: US (occurrence: US)
  Receive Date: 20121107
  Receipt Date: 20121107
  Transmission Date: 20130627
  Serious: Yes (Death, Life-Threatening, Hospitalization)
  Sender: FDA-Public Use
  Company Number: US-ROCHE-1151679

PATIENT
  Age: 44 None
  Sex: Female

DRUGS (1)
  1. CAPECITABINE [Suspect]
     Indication: BREAST CANCER METASTATIC
     Route: 048
     Dates: start: 20120716, end: 20121017

REACTIONS (5)
  - Death [Fatal]
  - Back pain [Unknown]
  - Nervous system disorder [Unknown]
  - Brain neoplasm [Unknown]
  - Blindness [Unknown]
